FAERS Safety Report 8444901-6 (Version None)
Quarter: 2012Q2

REPORT INFORMATION
  Report Type: 
  Country: None (occurrence: None)
  Receive Date: 20120611
  Receipt Date: 20120531
  Transmission Date: 20120825
  Serious: Yes (Other)
  Sender: FDA-Public Use
  Company Number: ACO_29860_2012

PATIENT
  Sex: Female
  Weight: 38.6 kg

DRUGS (14)
  1. OXYBUTYNIN [Concomitant]
  2. AMPYRA [Suspect]
     Indication: PRODUCT USED FOR UNKNOWN INDICATION
     Dosage: 10 MG, BID 10 MG, QD
     Dates: start: 20110901
  3. AMBIEN [Concomitant]
  4. CORICIDIN II COLD AND FLU (CHLORPHENAMINE MALEATE, DEXTROMETHORPHAN HY [Concomitant]
  5. CALCIUM CARBONATE [Concomitant]
  6. PREDNISONE TAB [Concomitant]
  7. ZANTAC [Concomitant]
  8. ALL OTHER THERAPEUTIC PRODUCTS [Concomitant]
  9. NAPROSYN [Concomitant]
  10. HYDROCODONE BITARTRATE + ACETAMINOPHEN [Concomitant]
  11. BELLADONNA AND PHENOBARBITONE (ATROPA BELLADONNA EXTRACT, PHENOBARBITA [Concomitant]
  12. IRON (IRON) [Concomitant]
  13. VITAMIN TAB [Concomitant]
  14. BACLOFEN [Concomitant]

REACTIONS (9)
  - URINARY TRACT INFECTION [None]
  - GINGIVAL PAIN [None]
  - DIZZINESS [None]
  - BLADDER SPASM [None]
  - NAUSEA [None]
  - INAPPROPRIATE SCHEDULE OF DRUG ADMINISTRATION [None]
  - ANAEMIA [None]
  - CONVULSION [None]
  - ACTIVITIES OF DAILY LIVING IMPAIRED [None]
